FAERS Safety Report 8072171-X (Version None)
Quarter: 2012Q1

REPORT INFORMATION
  Report Type: 
  Country: None (occurrence: None)
  Receive Date: 20120126
  Receipt Date: 20120123
  Transmission Date: 20120608
  Serious: No
  Sender: FDA-Public Use
  Company Number: US-PFIZER INC-2012019437

PATIENT
  Sex: Male
  Weight: 53.061 kg

DRUGS (3)
  1. HUMIRA [Concomitant]
     Indication: CROHN'S DISEASE
     Dosage: 40 MG, WEEKLY
  2. CHANTIX [Suspect]
     Indication: SMOKING CESSATION THERAPY
     Dosage: UNK
     Dates: start: 20110101, end: 20110101
  3. HUMIRA [Concomitant]
     Indication: PSORIASIS

REACTIONS (2)
  - STRESS [None]
  - TOBACCO USER [None]
